FAERS Safety Report 21719484 (Version 4)
Quarter: 2023Q2

REPORT INFORMATION
  Report Type: Spontaneous
  Country: US (occurrence: US)
  Receive Date: 20221213
  Receipt Date: 20230424
  Transmission Date: 20230721
  Serious: No
  Sender: FDA-Public Use
  Company Number: US-SA-SAC20221212000256

PATIENT
  Age: 44 Year
  Sex: Female

DRUGS (4)
  1. KEVZARA [Suspect]
     Active Substance: SARILUMAB
     Indication: Rheumatoid arthritis
     Dosage: 150 MG, QOW
     Route: 058
     Dates: start: 202211
  2. KEVZARA [Suspect]
     Active Substance: SARILUMAB
     Dosage: 200 MG, QOW
     Route: 058
     Dates: start: 202211
  3. METHOTREXATE [Suspect]
     Active Substance: METHOTREXATE
  4. MELOXICAM [Suspect]
     Active Substance: MELOXICAM

REACTIONS (7)
  - Sleep disorder [Unknown]
  - Chest pain [Unknown]
  - Pleurisy [Unknown]
  - Gastrointestinal disorder [Unknown]
  - Cough [Unknown]
  - Influenza [Unknown]
  - Urinary tract infection [Unknown]

NARRATIVE: CASE EVENT DATE: 20230311
